FAERS Safety Report 7973247-5 (Version None)
Quarter: 2011Q4

REPORT INFORMATION
  Report Type: 
  Country: None (occurrence: None)
  Receive Date: 20111213
  Receipt Date: 20111205
  Transmission Date: 20120403
  Serious: Yes (Death)
  Sender: FDA-Public Use
  Company Number: PHHY2011US108206

PATIENT
  Age: 76 Year
  Sex: Female

DRUGS (3)
  1. DILTIAZEM HCL [Suspect]
  2. CARDIAC GLYCOSIDES [Suspect]
  3. METOPROLOL TARTRATE [Suspect]

REACTIONS (1)
  - DEATH [None]
